FAERS Safety Report 7911791-7 (Version None)
Quarter: 2011Q4

REPORT INFORMATION
  Report Type: 
  Country: None (occurrence: None)
  Receive Date: 20111114
  Receipt Date: 20111114
  Transmission Date: 20120403
  Serious: No
  Sender: FDA-Public Use
  Company Number: None

PATIENT
  Age: 67 Year
  Sex: Female
  Weight: 68.038 kg

DRUGS (1)
  1. WELCHOL [Suspect]
     Indication: BLOOD CHOLESTEROL INCREASED
     Dosage: 6 PER DAY
     Route: 048
     Dates: start: 20111109, end: 20111111

REACTIONS (6)
  - ANXIETY [None]
  - ABDOMINAL PAIN UPPER [None]
  - FATIGUE [None]
  - CHEST PAIN [None]
  - HEADACHE [None]
  - DIARRHOEA [None]
